FAERS Safety Report 11674901 (Version 1)
Quarter: 2015Q4

REPORT INFORMATION
  Report Type: Spontaneous
  Country: US (occurrence: US)
  Receive Date: 20151027
  Receipt Date: 20151027
  Transmission Date: 20160304
  Serious: No
  Sender: FDA-Public Use
  Company Number: US-ELI_LILLY_AND_COMPANY-US201008006858

PATIENT
  Sex: Female

DRUGS (4)
  1. GABAPENTINE [Concomitant]
     Active Substance: GABAPENTIN
     Dosage: 300 UG, 3/D
  2. PROPAFENONE. [Concomitant]
     Active Substance: PROPAFENONE
     Dosage: 150 MG, UNK
  3. VITAMINS [Concomitant]
     Active Substance: VITAMINS
  4. FORTEO [Suspect]
     Active Substance: TERIPARATIDE
     Indication: OSTEOPOROSIS
     Dosage: 20 UG, DAILY (1/D)
     Dates: start: 20100807

REACTIONS (4)
  - Injection site pain [Unknown]
  - Sciatic nerve neuropathy [Unknown]
  - Arthralgia [Unknown]
  - Rib fracture [Unknown]
